FAERS Safety Report 5312742-4 (Version None)
Quarter: 2007Q2

REPORT INFORMATION
  Report Type: 
  Country: None (occurrence: None)
  Receive Date: 20070430
  Receipt Date: 20070425
  Transmission Date: 20071010
  Serious: Yes (Other)
  Sender: FDA-Public Use
  Company Number: US-GENENTECH-218824

PATIENT
  Sex: Female
  Weight: 79.55 kg

DRUGS (2)
  1. OMALIZUMAB [Suspect]
     Indication: ASTHMA
     Dosage: 300 MG, Q4W
     Route: 058
     Dates: start: 20050114, end: 20050715
  2. OMALIZUMAB [Suspect]
     Dates: start: 20051202

REACTIONS (1)
  - DERMATITIS [None]
